FAERS Safety Report 8614940-0 (Version None)
Quarter: 2012Q3

REPORT INFORMATION
  Report Type: 
  Country: None (occurrence: None)
  Receive Date: 20120823
  Receipt Date: 20120810
  Transmission Date: 20120928
  Serious: Yes (Hospitalization)
  Sender: FDA-Public Use
  Company Number: JP-VERTEX PHARMACEUTICAL INC.-2012-019714

PATIENT
  Age: 70 Year
  Sex: Male

DRUGS (3)
  1. PEGINTRON                          /01543001/ [Concomitant]
     Dosage: 1.5 A?G/KG, UNK
     Route: 058
     Dates: start: 20120704
  2. VX-950 [Suspect]
  3. REBETOL [Concomitant]
     Dosage: 400 DF, QD
     Route: 048
     Dates: start: 20120704

REACTIONS (1)
  - ERYTHEMA [None]
